FAERS Safety Report 7736496-7 (Version None)
Quarter: 2011Q3

REPORT INFORMATION
  Report Type: 
  Country: None (occurrence: None)
  Receive Date: 20110902
  Receipt Date: 20110824
  Transmission Date: 20111222
  Serious: Yes (Hospitalization)
  Sender: FDA-Public Use
  Company Number: 2011MA012542

PATIENT
  Age: 48 Year
  Sex: Female

DRUGS (1)
  1. BUPROPION HYDROCHLORIDE [Suspect]
     Indication: PRODUCT USED FOR UNKNOWN INDICATION

REACTIONS (6)
  - BRUXISM [None]
  - TARDIVE DYSKINESIA [None]
  - HEPATITIS B [None]
  - CHEST DISCOMFORT [None]
  - PALPITATIONS [None]
  - MUSCLE TWITCHING [None]
